FAERS Safety Report 8768535 (Version 1)
Quarter: 2012Q4

REPORT INFORMATION
  Report Type: 
  Country: US (occurrence: US)
  Receive Date: 20120904
  Receipt Date: 20120904
  Transmission Date: 20130627
  Serious: Yes (Hospitalization, Other)
  Sender: FDA-Public Use
  Company Number: US-009507513-1109USA00704

PATIENT

DRUGS (12)
  1. FOSAMAX [Suspect]
     Indication: OSTEOPENIA
     Dosage: 70 mg, UNK
     Route: 048
     Dates: start: 1996, end: 200809
  2. FOSAMAX [Suspect]
     Indication: OSTEOPENIA
     Dosage: 70 mg, UNK
     Route: 048
     Dates: start: 200810, end: 200909
  3. LIPITOR [Concomitant]
     Indication: BLOOD CHOLESTEROL INCREASED
     Dosage: 10 mg, qd
     Dates: start: 2007, end: 2008
  4. MEVACOR [Concomitant]
     Indication: HYPERCHOLESTEROLAEMIA
     Dosage: 20 mg, qd
     Route: 048
  5. PREMARIN [Concomitant]
  6. PREMPRO [Concomitant]
  7. ALTACE [Concomitant]
     Dosage: 20-40
  8. MK-0152 [Concomitant]
     Dosage: 25 mg, qd
  9. ACCUPRIL [Concomitant]
     Dosage: 30-60
  10. AMLODIPINE [Concomitant]
     Dosage: 5 mg, qd
  11. NORVASC [Concomitant]
     Dosage: 7.5 mg, qd
  12. ALENDRONATE SODIUM [Suspect]
     Dosage: 70 mg, UNK

REACTIONS (56)
  - Femur fracture [Unknown]
  - Low turnover osteopathy [Unknown]
  - Femur fracture [Unknown]
  - Fracture nonunion [Unknown]
  - Device failure [Unknown]
  - Pain in extremity [Unknown]
  - Gingival disorder [Unknown]
  - Osteoarthritis [Unknown]
  - Coronary ostial stenosis [Unknown]
  - Pyrexia [Unknown]
  - Cough [Unknown]
  - Laryngitis [Unknown]
  - Sputum discoloured [Unknown]
  - Pain [Unknown]
  - Overdose [Unknown]
  - Diarrhoea [Unknown]
  - Nocturia [Unknown]
  - Pharyngitis [Unknown]
  - Dysphonia [Unknown]
  - Sinus congestion [Unknown]
  - Dyspnoea [Unknown]
  - Pyrexia [Unknown]
  - Fall [Unknown]
  - Adverse event [Unknown]
  - Blood pressure systolic decreased [Recovering/Resolving]
  - Anaemia [Unknown]
  - Carotid bruit [Unknown]
  - Cardiac murmur [Unknown]
  - Renal failure [Unknown]
  - Myocardial infarction [Unknown]
  - Presyncope [Unknown]
  - Epistaxis [Unknown]
  - Thirst [Unknown]
  - Increased tendency to bruise [Unknown]
  - Shock haemorrhagic [Unknown]
  - Large intestinal haemorrhage [Unknown]
  - Diverticulum intestinal [Unknown]
  - Large intestine polyp [Unknown]
  - Hypertrophic anal papilla [Unknown]
  - Osteoporosis [Unknown]
  - Breast cancer [Unknown]
  - Haematocrit decreased [Unknown]
  - Uterine haemorrhage [Unknown]
  - Left ventricular hypertrophy [Unknown]
  - Kyphoscoliosis [Unknown]
  - Femoral bruit [Unknown]
  - Mitral valve incompetence [Unknown]
  - Coronary angioplasty [Unknown]
  - Gastrointestinal disorder [Unknown]
  - Subcutaneous emphysema [Recovered/Resolved]
  - Chronic obstructive pulmonary disease [Not Recovered/Not Resolved]
  - Coronary artery disease [Unknown]
  - Coronary artery bypass [Unknown]
  - Pneumothorax [Recovered/Resolved]
  - Medical device removal [Unknown]
  - Angina unstable [Unknown]
